FAERS Safety Report 4816196-3 (Version None)
Quarter: 2005Q4

REPORT INFORMATION
  Report Type: 
  Country: None (occurrence: None)
  Receive Date: 20051025
  Receipt Date: 20051020
  Transmission Date: 20060501
  Serious: Yes (Death, Hospitalization)
  Sender: FDA-Public Use
  Company Number: HQ1186304OCT1999

PATIENT
  Age: 46 Year
  Sex: Male

DRUGS (8)
  1. EFFEXOR [Suspect]
     Indication: DEPRESSION
     Dosage: 37.5 MG 1X PER 1 DAY; ORAL
     Route: 048
     Dates: start: 19990922, end: 19990922
  2. WARFARIN SODIUM [Suspect]
     Indication: MITRAL VALVE REPLACEMENT
     Dosage: 4 MG 1X PER 1 DAY; ORAL
     Route: 048
     Dates: start: 19990911, end: 19990922
  3. LACTULOSE [Concomitant]
  4. RANITIDINE [Concomitant]
  5. ACETAMINOPHEN [Concomitant]
  6. ATENOLOL [Concomitant]
  7. FRUSEMIDE [Concomitant]
  8. GENTAMICIN [Concomitant]

REACTIONS (4)
  - BRAIN HERNIATION [None]
  - DIASTOLIC HYPERTENSION [None]
  - SUBARACHNOID HAEMORRHAGE [None]
  - TACHYCARDIA [None]
